FAERS Safety Report 21947930 (Version 5)
Quarter: 2023Q1

REPORT INFORMATION
  Report Type: Report from Study
  Country: US (occurrence: US)
  Receive Date: 20230203
  Receipt Date: 20230328
  Transmission Date: 20230417
  Serious: Yes (Hospitalization)
  Sender: FDA-Public Use
  Company Number: US-GBT-019721

PATIENT
  Age: 23 Year
  Sex: Male

DRUGS (15)
  1. OXBRYTA [Suspect]
     Active Substance: VOXELOTOR
     Indication: Sickle cell disease
     Dates: start: 20220408
  2. OXBRYTA [Suspect]
     Active Substance: VOXELOTOR
     Indication: Sickle cell disease
     Route: 048
     Dates: start: 20230127, end: 20230207
  3. crizanlizumab-tmca (Adakveo) in NaCl 0.9% 100 mL infusion [Concomitant]
     Indication: Sickle cell disease
     Dosage: MONTHLY INFUSION IN NACL 0.9% 100 ML INFUSION
     Route: 042
     Dates: start: 20211217
  4. oxycodone IR (roxicodone) 15 mg immediate release tablet [Concomitant]
     Indication: Sickle cell disease
     Dosage: TIME INTERVAL: AS NECESSARY: Q4H PRN
     Route: 048
     Dates: start: 20200923
  5. morphine (MS CONTIN) 60 mg 12 extended release tablet [Concomitant]
     Indication: Sickle cell disease
     Route: 048
     Dates: start: 20220531
  6. ibuprofen (motrin) 600 mg tablet [Concomitant]
     Indication: Sickle cell disease
     Dosage: TIME INTERVAL: AS NECESSARY: Q6H PRN
     Route: 048
  7. amoxicillin (Amoxil) 250 mg capsule [Concomitant]
     Indication: Sickle cell disease
     Route: 048
     Dates: start: 20190322
  8. lidocaine (aspercreme) 4% transdermal patch [Concomitant]
     Indication: Sickle cell disease
     Route: 062
     Dates: start: 20220821
  9. gabapentin (neurontin) 600 mg tablet [Concomitant]
     Indication: Sickle cell disease
     Route: 048
     Dates: start: 20220809
  10. famotidine (Pepcid) 20 mg tablet [Concomitant]
     Indication: Sickle cell disease
     Route: 048
     Dates: start: 20220728
  11. cholecalciferol (vitamin D3) 25 mcg (1,000?unit) tablet [Concomitant]
     Indication: Product used for unknown indication
     Route: 048
     Dates: start: 20220708
  12. hydroxyurea (hydrea) 500 mg capsule [Concomitant]
     Indication: Sickle cell disease
     Dosage: ALTERNATE 1500/2000 MG
     Route: 048
     Dates: start: 20160719
  13. lisinopril (prinivil) 10 mg tablet [Concomitant]
     Indication: Product used for unknown indication
     Route: 048
     Dates: start: 20220401
  14. folic acid (folvite) 1 mg tablet [Concomitant]
     Indication: Sickle cell disease
     Route: 048
     Dates: start: 20121214
  15. acetaminophen (Tylenol) tablet [Concomitant]
     Indication: Sickle cell disease
     Dosage: SUBJECT GETS PO TYLENOL ^PRE-MED^ AT EACH?ADAKVEO INFUSION APPOINTMENT
     Route: 048
     Dates: start: 20211217

REACTIONS (3)
  - Acute chest syndrome [Recovered/Resolved]
  - Sickle cell anaemia with crisis [Recovered/Resolved]
  - Deep vein thrombosis [Recovered/Resolved]

NARRATIVE: CASE EVENT DATE: 20230124
